FAERS Safety Report 21701062 (Version 2)
Quarter: 2022Q4

REPORT INFORMATION
  Report Type: Spontaneous
  Country: US (occurrence: None)
  Receive Date: 20221208
  Receipt Date: 20221228
  Transmission Date: 20230112
  Serious: Yes (Hospitalization, Other)
  Sender: FDA-Public Use
  Company Number: 2022A401029

PATIENT
  Age: 76 Year
  Sex: Female
  Weight: 67 kg

DRUGS (6)
  1. ANDEXANET ALFA [Suspect]
     Active Substance: ANDEXANET ALFA
     Dosage: A 400 MG BOLUS GIVEN OVER 30 MINUTES
     Route: 042
  2. ANDEXANET ALFA [Suspect]
     Active Substance: ANDEXANET ALFA
     Dosage: A LOW-DOSE INFUSION STARTED (4 MG/MIN).
     Route: 042
  3. COAGULATION FACTOR IX HUMAN\COAGULATION FACTOR VII HUMAN\COAGULATION F [Suspect]
     Active Substance: COAGULATION FACTOR IX HUMAN\COAGULATION FACTOR VII HUMAN\COAGULATION FACTOR X HUMAN\PROTEIN C\PROTEI
     Indication: Surgery
     Route: 065
  4. APIXABAN [Concomitant]
     Active Substance: APIXABAN
     Route: 065
  5. HEPARIN [Concomitant]
     Active Substance: HEPARIN SODIUM
     Dosage: A 400 U/KG BOLUS
     Route: 065
  6. HEPARIN [Concomitant]
     Active Substance: HEPARIN SODIUM
     Dosage: 52,000 U
     Route: 065

REACTIONS (3)
  - Heparin resistance [Unknown]
  - Encephalopathy [Unknown]
  - Acute respiratory failure [Unknown]
